FAERS Safety Report 6613047-1 (Version None)
Quarter: 2010Q1

REPORT INFORMATION
  Report Type: 
  Country: None (occurrence: None)
  Receive Date: 20100304
  Receipt Date: 20100222
  Transmission Date: 20100710
  Serious: Yes (Hospitalization, Other)
  Sender: FDA-Public Use
  Company Number: US-BIOGENIDEC-2008BI017519

PATIENT
  Age: 44 Year
  Sex: Male
  Weight: 113 kg

DRUGS (18)
  1. TYSABRI [Suspect]
     Indication: MULTIPLE SCLEROSIS
     Route: 042
     Dates: start: 20070102, end: 20090709
  2. PRILOSEC [Concomitant]
  3. FOLIC ACID [Concomitant]
  4. LOPRESSOR [Concomitant]
  5. LASIX [Concomitant]
  6. DOXAZOSIN MESYLATE [Concomitant]
  7. NEURONTIN [Concomitant]
     Indication: MULTIPLE SCLEROSIS
  8. PROVIGIL [Concomitant]
     Indication: MULTIPLE SCLEROSIS
  9. AMITRIPTYLINE HCL [Concomitant]
     Indication: ANXIETY
  10. WELLBUTRIN [Concomitant]
  11. IMDUR [Concomitant]
  12. PLAVIX [Concomitant]
  13. LIPITOR [Concomitant]
  14. NICOTINE [Concomitant]
     Indication: SMOKING CESSATION THERAPY
  15. ASPIRIN [Concomitant]
  16. MS CONTIN [Concomitant]
  17. TRAZODONE HCL [Concomitant]
     Indication: ANXIETY
  18. ATIVAN [Concomitant]
     Indication: ANXIETY

REACTIONS (7)
  - APPENDICITIS PERFORATED [None]
  - ENTEROCOCCAL INFECTION [None]
  - INTERVERTEBRAL DISC OPERATION [None]
  - LIVER ABSCESS [None]
  - MULTIPLE SCLEROSIS RELAPSE [None]
  - PERITONEAL ABSCESS [None]
  - PULMONARY EMBOLISM [None]
